FAERS Safety Report 12776159 (Version 1)
Quarter: 2016Q3

REPORT INFORMATION
  Report Type: Spontaneous
  Country: US (occurrence: US)
  Receive Date: 20160923
  Receipt Date: 20160923
  Transmission Date: 20161109
  Serious: Yes (Other)
  Sender: FDA-Public Use
  Company Number: US-BAYER-2016-181867

PATIENT
  Age: 19 Year
  Sex: Male

DRUGS (3)
  1. TRIMETOPRIM + SULFAMETOXAZOL [Suspect]
     Active Substance: SULFAMETHOXAZOLE\TRIMETHOPRIM
     Indication: PROPHYLAXIS
     Dosage: 160/800 MG
  2. PENICILLIN VK [Suspect]
     Active Substance: PENICILLIN V POTASSIUM
     Indication: ASPLENIA
     Dosage: 250 MG, BID
  3. CIPROFLOXACIN. [Suspect]
     Active Substance: CIPROFLOXACIN
     Indication: PROPHYLAXIS
     Dosage: 750 MG, QD, FOR THE 1ST 2 WEEKS OF EVERY MONTH
     Route: 048

REACTIONS (2)
  - Pathogen resistance [None]
  - Bacteraemia [None]
